FAERS Safety Report 18047246 (Version 1)
Quarter: 2020Q3

REPORT INFORMATION
  Report Type: Spontaneous
  Country: CN (occurrence: CN)
  Receive Date: 20200720
  Receipt Date: 20200720
  Transmission Date: 20201103
  Serious: Yes (Other)
  Sender: FDA-Public Use
  Company Number: CN-BAXTER-2020BAX014404

PATIENT
  Age: 41 Year
  Sex: Female
  Weight: 71.5 kg

DRUGS (4)
  1. SODIUM CHLORIDE. [Suspect]
     Active Substance: SODIUM CHLORIDE
     Indication: MEDICATION DILUTION
     Dosage: ENDOXAN 1.05 G (0.2 G) + 0.9% SODIUM CHLORIDE 100 ML
     Route: 041
     Dates: start: 20200624, end: 20200624
  2. ENDOXAN [Suspect]
     Active Substance: CYCLOPHOSPHAMIDE
     Indication: INVASIVE DUCTAL BREAST CARCINOMA
     Dosage: ENDOXAN 1.05 G (0.2 G) + 0.9% SODIUM CHLORIDE 100 ML
     Route: 041
     Dates: start: 20200624, end: 20200624
  3. PHARMORUBICIN [Suspect]
     Active Substance: EPIRUBICIN
     Indication: INVASIVE DUCTAL BREAST CARCINOMA
     Dosage: PHARMORUBICIN 155 MG (10 MG) + 0.9% SODIUM CHLORIDE 100 ML
     Route: 041
     Dates: start: 20200624, end: 20200624
  4. 0.9% SODIUM CHLORIDE INJECTION [Suspect]
     Active Substance: SODIUM CHLORIDE
     Indication: MEDICATION DILUTION
     Dosage: PHARMORUBICIN 155 MG (10 MG) + 0.9% SODIUM CHLORIDE 100 ML
     Route: 041
     Dates: start: 20200624, end: 20200624

REACTIONS (1)
  - Leukopenia [Recovering/Resolving]

NARRATIVE: CASE EVENT DATE: 20200701
